FAERS Safety Report 15586885 (Version 1)
Quarter: 2018Q4

REPORT INFORMATION
  Report Type: Spontaneous
  Country: US (occurrence: US)
  Receive Date: 20181105
  Receipt Date: 20181105
  Transmission Date: 20190205
  Serious: No
  Sender: FDA-Public Use
  Company Number: US-PFIZER INC-2018109687

PATIENT
  Age: 79 Year
  Sex: Male
  Weight: 64 kg

DRUGS (1)
  1. GENOTROPIN MQ [Suspect]
     Active Substance: SOMATROPIN
     Indication: GROWTH HORMONE DEFICIENCY
     Dosage: 0.4 MG, 1X/DAY
     Dates: start: 201711

REACTIONS (8)
  - Haemoglobin decreased [Unknown]
  - Red blood cell count decreased [Unknown]
  - Red cell distribution width increased [Unknown]
  - Blood albumin decreased [Unknown]
  - Albumin globulin ratio decreased [Unknown]
  - Haematocrit decreased [Unknown]
  - Low density lipoprotein increased [Unknown]
  - White blood cell count decreased [Unknown]
